FAERS Safety Report 5709869-1 (Version None)
Quarter: 2008Q2

REPORT INFORMATION
  Report Type: 
  Country: None (occurrence: None)
  Receive Date: 20080418
  Receipt Date: 20070508
  Transmission Date: 20081010
  Serious: No
  Sender: FDA-Public Use
  Company Number: US-ASTRAZENECA-2007UW05431

PATIENT
  Age: 61 Year
  Sex: Male
  Weight: 80.7 kg

DRUGS (6)
  1. TOPROL-XL [Suspect]
     Indication: ANGINA UNSTABLE
     Route: 048
     Dates: start: 20060901
  2. CRESTOR [Concomitant]
     Route: 048
  3. ZETIA [Concomitant]
  4. PROTONIX [Concomitant]
  5. RENAXA [Concomitant]
  6. NIACIN [Concomitant]

REACTIONS (3)
  - HEART RATE DECREASED [None]
  - METABOLIC DISORDER [None]
  - WEIGHT INCREASED [None]
